FAERS Safety Report 20377892 (Version 2)
Quarter: 2022Q1

REPORT INFORMATION
  Report Type: Spontaneous
  Country: JP (occurrence: JP)
  Receive Date: 20220126
  Receipt Date: 20220310
  Transmission Date: 20220424
  Serious: Yes (Hospitalization)
  Sender: FDA-Public Use
  Company Number: JP-NOVARTISPH-NVSJ2021JP020646

PATIENT
  Age: 18 Year
  Sex: Female
  Weight: 45 kg

DRUGS (3)
  1. ILARIS [Suspect]
     Active Substance: CANAKINUMAB
     Indication: Cryopyrin associated periodic syndrome
     Dosage: 300 MG
     Route: 058
     Dates: start: 20120221
  2. ILARIS [Suspect]
     Active Substance: CANAKINUMAB
     Dosage: 300 MG
     Route: 058
     Dates: start: 20211222
  3. METHOTREXATE [Concomitant]
     Active Substance: METHOTREXATE
     Indication: Cryopyrin associated periodic syndrome
     Dosage: 10 MG, QD
     Route: 048
     Dates: start: 20050216, end: 20211222

REACTIONS (6)
  - Mouth ulceration [Recovering/Resolving]
  - Concomitant disease aggravated [Recovering/Resolving]
  - Infection [Unknown]
  - Pyrexia [Unknown]
  - Oropharyngeal pain [Recovering/Resolving]
  - Chondrocalcinosis [Not Recovered/Not Resolved]

NARRATIVE: CASE EVENT DATE: 20211202
